FAERS Safety Report 9900417 (Version 2)
Quarter: 2014Q1

REPORT INFORMATION
  Report Type: Spontaneous
  Country: IT (occurrence: IT)
  Receive Date: 20140217
  Receipt Date: 20140314
  Transmission Date: 20141002
  Serious: Yes (Other)
  Sender: FDA-Public Use
  Company Number: IT-ROCHE-1348385

PATIENT
  Age: 39 Year
  Sex: Female

DRUGS (10)
  1. NELFINAVIR [Suspect]
     Indication: HIV INFECTION
     Route: 048
     Dates: start: 199803
  2. SAQUINAVIR [Suspect]
     Indication: HIV INFECTION
     Route: 065
  3. STAVUDINE [Suspect]
     Indication: HIV INFECTION
     Route: 065
     Dates: start: 199803
  4. EFAVIRENZ [Suspect]
     Indication: HIV INFECTION
     Route: 065
     Dates: start: 199803
  5. ZIDOVUDINE [Suspect]
     Indication: HIV INFECTION
     Route: 065
     Dates: start: 199803
  6. DIDANOSINE [Suspect]
     Indication: HIV INFECTION
     Route: 065
  7. PYRIMETHAMINE [Concomitant]
     Route: 065
  8. FUROSEMIDE [Concomitant]
     Route: 065
  9. GANCICLOVIR [Concomitant]
     Route: 065
  10. PENTAMIDINE ISETHIONATE [Concomitant]
     Route: 065

REACTIONS (4)
  - Hepatic cirrhosis [Unknown]
  - Diarrhoea [Unknown]
  - Liver disorder [Unknown]
  - Drug level increased [Unknown]
